FAERS Safety Report 7322925-X (Version None)
Quarter: 2011Q1

REPORT INFORMATION
  Report Type: 
  Country: None (occurrence: None)
  Receive Date: 20110301
  Receipt Date: 20110215
  Transmission Date: 20110831
  Serious: Yes (Other)
  Sender: FDA-Public Use
  Company Number: US-CELGENEUS-163-21880-11022158

PATIENT
  Sex: Male

DRUGS (4)
  1. REVLIMID [Suspect]
     Dosage: 25 MILLIGRAM
     Route: 048
     Dates: start: 20101230
  2. ASA [Concomitant]
     Route: 065
  3. HUMALOG [Concomitant]
     Route: 065
  4. LANTUS [Concomitant]
     Route: 065

REACTIONS (1)
  - ADVERSE EVENT [None]
